FAERS Safety Report 22124955 (Version 1)
Quarter: 2023Q1

REPORT INFORMATION
  Report Type: Spontaneous
  Country: US (occurrence: None)
  Receive Date: 20230321
  Receipt Date: 20230321
  Transmission Date: 20230418
  Serious: Yes (Other)
  Sender: FDA-Public Use
  Company Number: None

PATIENT
  Sex: Male

DRUGS (9)
  1. ENBREL [Suspect]
     Active Substance: ETANERCEPT
     Indication: Rheumatoid arthritis
     Dosage: 50 MG/ML ??INJECT 50 MG UNDER  THE SKIN (SUBCUTANEOUS INJECTION) EVERY 7 DAYS
     Dates: start: 20201016
  2. ENBREL [Suspect]
     Active Substance: ETANERCEPT
     Dosage: FREQUENCY : WEEKLY;?
     Route: 058
  3. FOLIC ACID [Concomitant]
     Active Substance: FOLIC ACID
  4. METHOTREXATE [Concomitant]
  5. MULTIVITAMIN [Concomitant]
  6. TAMSULOSIN [Concomitant]
     Active Substance: TAMSULOSIN
  7. TRAZODONE [Concomitant]
     Active Substance: TRAZODONE HYDROCHLORIDE
  8. VITAMIN C CHW [Concomitant]
  9. VITAMIN D3 [Concomitant]
     Active Substance: CHOLECALCIFEROL

REACTIONS (2)
  - Cholecystectomy [None]
  - Therapy interrupted [None]
